FAERS Safety Report 6987424-3 (Version None)
Quarter: 2010Q3

REPORT INFORMATION
  Report Type: 
  Country: None (occurrence: None)
  Receive Date: 20100916
  Receipt Date: 20100910
  Transmission Date: 20110219
  Serious: Yes (Other)
  Sender: FDA-Public Use
  Company Number: US-BRISTOL-MYERS SQUIBB COMPANY-15281355

PATIENT
  Sex: Male

DRUGS (2)
  1. PRAVASTATIN SODIUM [Suspect]
     Indication: LOW DENSITY LIPOPROTEIN
  2. ZOCOR [Suspect]
     Indication: LOW DENSITY LIPOPROTEIN

REACTIONS (1)
  - ATRIAL FIBRILLATION [None]
